FAERS Safety Report 8396102-8 (Version None)
Quarter: 2012Q2

REPORT INFORMATION
  Report Type: 
  Country: None (occurrence: None)
  Receive Date: 20120530
  Receipt Date: 20120525
  Transmission Date: 20120825
  Serious: Yes (Other)
  Sender: FDA-Public Use
  Company Number: US-PFIZER INC-2012105116

PATIENT
  Sex: Female
  Weight: 116.5 kg

DRUGS (5)
  1. FLUOXETINE [Concomitant]
     Dosage: 40 MG, 1X/DAY
  2. LYRICA [Suspect]
     Indication: FIBROMYALGIA
     Dosage: 200 MG, 2X/DAY
     Route: 048
     Dates: end: 20120401
  3. LYRICA [Suspect]
     Dosage: UNK
     Dates: start: 20120401
  4. DICLOFENAC [Concomitant]
     Indication: ARTHRITIS
     Dosage: 75 MG, 2X/DAY
  5. CLONAZEPAM [Concomitant]
     Indication: INSOMNIA
     Dosage: 2 MG, 1X/DAY
     Route: 048

REACTIONS (6)
  - HYPOTHYROIDISM [None]
  - WITHDRAWAL SYNDROME [None]
  - FATIGUE [None]
  - PAIN [None]
  - ABDOMINAL DISCOMFORT [None]
  - NAUSEA [None]
